FAERS Safety Report 9852320 (Version 1)
Quarter: 2014Q1

REPORT INFORMATION
  Report Type: Spontaneous
  Country: PL (occurrence: PL)
  Receive Date: 20140129
  Receipt Date: 20140129
  Transmission Date: 20141002
  Serious: Yes (Death)
  Sender: FDA-Public Use
  Company Number: PL-ACTELION-A-CH2014-94186

PATIENT
  Age: 58 Year
  Sex: Male
  Weight: 76 kg

DRUGS (8)
  1. TRACLEER [Suspect]
     Indication: PULMONARY ARTERIAL HYPERTENSION
     Dosage: 125 MG, BID
     Route: 048
     Dates: start: 20111207, end: 20140110
  2. TRACLEER [Suspect]
     Dosage: 62.5 MG, BID
     Route: 048
     Dates: start: 20111106, end: 20111206
  3. ACENOCUMAROL [Concomitant]
     Indication: ATRIAL FIBRILLATION
     Dosage: UNK
     Dates: start: 201103
  4. DIGOXINE [Concomitant]
     Indication: ATRIAL FIBRILLATION
     Dosage: 100 ?G, QD
     Dates: start: 201103
  5. TRITACE [Concomitant]
     Indication: CARDIAC FAILURE
     Dosage: 5 MG, QD
     Dates: start: 201103
  6. FUROSEMIDE [Concomitant]
     Indication: CARDIAC FAILURE
     Dosage: 40 MG, BID
     Dates: start: 201103
  7. VIVACOR [Concomitant]
     Indication: ATRIAL FIBRILLATION
     Dosage: 12.5 MG, QD
     Dates: start: 201103
  8. SPIRONOL [Concomitant]
     Indication: CARDIAC FAILURE
     Dosage: 25 MG, BID
     Dates: start: 201103

REACTIONS (1)
  - Cardiac arrest [Fatal]
